FAERS Safety Report 4556499-3 (Version None)
Quarter: 2005Q1

REPORT INFORMATION
  Report Type: 
  Country: None (occurrence: None)
  Receive Date: 20050118
  Receipt Date: 20050111
  Transmission Date: 20050727
  Serious: Yes (Other)
  Sender: FDA-Public Use
  Company Number: USA-2004-0017976

PATIENT
  Age: 66 Year
  Sex: Female
  Weight: 61.2 kg

DRUGS (3)
  1. OXYCONTIN [Suspect]
     Indication: CANCER PAIN
     Dosage: 40 MG, Q12H, UNK (SEE IMAGE)
     Dates: start: 19990101, end: 20020101
  2. LORTAB [Concomitant]
  3. COMBIVENT [Concomitant]

REACTIONS (5)
  - CONFUSIONAL STATE [None]
  - CRYING [None]
  - DISTURBANCE IN ATTENTION [None]
  - HEPATITIS C [None]
  - NIGHTMARE [None]
